FAERS Safety Report 8130354-4 (Version None)
Quarter: 2012Q1

REPORT INFORMATION
  Report Type: 
  Country: None (occurrence: None)
  Receive Date: 20120210
  Receipt Date: 20120206
  Transmission Date: 20120608
  Serious: Yes (Other)
  Sender: FDA-Public Use
  Company Number: PHHY2012FI003882

PATIENT
  Sex: Male

DRUGS (15)
  1. ENANTON [Concomitant]
     Dosage: UNK
     Dates: start: 20111025
  2. DOCETAXEL [Concomitant]
     Dates: start: 20111220
  3. ZOMETA [Suspect]
     Dosage: 4 MG, ONE INFUSION EVERY FOURTH WEEK
     Dates: start: 20111117
  4. ENANTON [Concomitant]
     Dosage: UNK
     Dates: start: 20090101
  5. ZOMETA [Suspect]
     Dosage: 4 MG, ONE INFUSION EVERY FOURTH WEEK
     Dates: start: 20111207
  6. D-CALSOR [Concomitant]
  7. ZOMETA [Suspect]
     Dosage: 4 MG, ONE INFUSION EVERY FOURTH WEEK
     Dates: start: 20110922
  8. PREDNISONE [Concomitant]
     Dosage: 10 MG, DAILY
     Dates: start: 20120118
  9. PREDNISONE [Concomitant]
     Dosage: 20 MG, UNK
  10. PANTOPRAZOLE [Concomitant]
  11. ZOMETA [Suspect]
     Indication: PROSTATE CANCER
     Dosage: 4 MG, ONE INFUSION EVERY FOURTH WEEK
     Dates: start: 20110727
  12. ZOMETA [Suspect]
     Dosage: 4 MG, ONE INFUSION EVERY FOURTH WEEK
     Dates: start: 20110825
  13. ZOMETA [Suspect]
     Dosage: 4 MG, ONE INFUSION EVERY FOURTH WEEK
     Dates: start: 20111020
  14. DOCETAXEL [Concomitant]
     Route: 042
     Dates: start: 20111207
  15. DEXAMETASON [Concomitant]

REACTIONS (15)
  - BLOOD BILIRUBIN INCREASED [None]
  - SKIN REACTION [None]
  - DECREASED APPETITE [None]
  - JAUNDICE [None]
  - PROSTATIC SPECIFIC ANTIGEN INCREASED [None]
  - LIVER INJURY [None]
  - URINE COLOUR ABNORMAL [None]
  - TOXICITY TO VARIOUS AGENTS [None]
  - ALANINE AMINOTRANSFERASE INCREASED [None]
  - PRURITUS [None]
  - SLEEP DISORDER [None]
  - ATHLETIC HEART SYNDROME [None]
  - MALAISE [None]
  - HEPATIC ENZYME INCREASED [None]
  - BLOOD ALKALINE PHOSPHATASE INCREASED [None]
